FAERS Safety Report 5069924-9 (Version None)
Quarter: 2006Q3

REPORT INFORMATION
  Report Type: 
  Country: None (occurrence: None)
  Receive Date: 20060731
  Receipt Date: 20060717
  Transmission Date: 20061208
  Serious: Yes (Death, Hospitalization, Other)
  Sender: FDA-Public Use
  Company Number: A-US2006-12179

PATIENT
  Age: 47 Year
  Sex: Female

DRUGS (7)
  1. TRACLEER [Suspect]
     Indication: PULMONARY HYPERTENSION
     Dosage: 125 MG, BID, ORAL   ;  62.5 MG, BID, ORAL
     Route: 048
     Dates: start: 20050902, end: 20051001
  2. TRACLEER [Suspect]
     Indication: PULMONARY HYPERTENSION
     Dosage: 125 MG, BID, ORAL   ;  62.5 MG, BID, ORAL
     Route: 048
     Dates: start: 20051002, end: 20060401
  3. OXYGEN [Concomitant]
  4. BRONCHODILATORS [Concomitant]
  5. NITROUS OXIDE W/ OXYGEN [Concomitant]
  6. ACE INHIBITOR [Concomitant]
  7. COUMADIN [Concomitant]

REACTIONS (13)
  - ALANINE AMINOTRANSFERASE INCREASED [None]
  - ASPARTATE AMINOTRANSFERASE INCREASED [None]
  - BLOOD ALKALINE PHOSPHATASE INCREASED [None]
  - CARDIAC FAILURE [None]
  - DISEASE PROGRESSION [None]
  - DYSPNOEA [None]
  - EXERCISE TOLERANCE DECREASED [None]
  - INTERSTITIAL LUNG DISEASE [None]
  - LIVER FUNCTION TEST ABNORMAL [None]
  - MYALGIA [None]
  - NASOPHARYNGITIS [None]
  - PRODUCTIVE COUGH [None]
  - RAYNAUD'S PHENOMENON [None]
